FAERS Safety Report 4795104-8 (Version None)
Quarter: 2005Q4

REPORT INFORMATION
  Report Type: 
  Country: None (occurrence: None)
  Receive Date: 20051006
  Receipt Date: 20050920
  Transmission Date: 20060501
  Serious: Yes (Hospitalization, Other)
  Sender: FDA-Public Use
  Company Number: 2005136312

PATIENT
  Age: 1 Year
  Sex: Female

DRUGS (5)
  1. PHENYTOIN SODIUM [Suspect]
     Indication: EPILEPSY
  2. QUININE SULFATE [Suspect]
     Indication: PLASMODIUM FALCIPARUM INFECTION
     Dosage: INTRAVENOUS
     Route: 042
  3. TOPIRAMATE [Concomitant]
  4. SULFADOXINE (SULFADOXINE) [Concomitant]
  5. VALPROATE SODIUM [Concomitant]

REACTIONS (6)
  - CONDITION AGGRAVATED [None]
  - CONVULSION [None]
  - DEPRESSED LEVEL OF CONSCIOUSNESS [None]
  - DRUG INTERACTION [None]
  - IRRITABILITY [None]
  - PYREXIA [None]
